FAERS Safety Report 23225155 (Version 1)
Quarter: 2023Q4

REPORT INFORMATION
  Report Type: Report from Study
  Country: NO (occurrence: NO)
  Receive Date: 20231124
  Receipt Date: 20231124
  Transmission Date: 20240110
  Serious: Yes (Other)
  Sender: FDA-Public Use
  Company Number: NO-VKT-000344

PATIENT
  Age: 3 Month

DRUGS (1)
  1. LEVETIRACETAM [Suspect]
     Active Substance: LEVETIRACETAM
     Indication: Exposure via breast milk
     Route: 063

REACTIONS (2)
  - Failure to thrive [Unknown]
  - Exposure via breast milk [Unknown]
